FAERS Safety Report 19073890 (Version 9)
Quarter: 2025Q2

REPORT INFORMATION
  Report Type: Spontaneous
  Country: US (occurrence: US)
  Receive Date: 20210330
  Receipt Date: 20250519
  Transmission Date: 20250716
  Serious: No
  Sender: PFIZER
  Company Number: US-PFIZER INC-2021323838

PATIENT
  Age: 64 Year
  Sex: Female
  Weight: 70 kg

DRUGS (10)
  1. IBRANCE [Suspect]
     Active Substance: PALBOCICLIB
     Indication: Breast cancer recurrent
     Dates: start: 20210301
  2. IBRANCE [Suspect]
     Active Substance: PALBOCICLIB
     Indication: Breast cancer metastatic
     Dates: start: 20210311
  3. IBRANCE [Suspect]
     Active Substance: PALBOCICLIB
     Indication: Breast cancer female
     Dates: start: 20210311, end: 20210823
  4. IBRANCE [Suspect]
     Active Substance: PALBOCICLIB
     Route: 048
     Dates: start: 20210313
  5. IBRANCE [Suspect]
     Active Substance: PALBOCICLIB
     Dates: start: 20210313, end: 20210326
  6. IBRANCE [Suspect]
     Active Substance: PALBOCICLIB
     Dates: start: 20210315
  7. IBRANCE [Suspect]
     Active Substance: PALBOCICLIB
     Dates: start: 20210408
  8. IBRANCE [Suspect]
     Active Substance: PALBOCICLIB
     Dates: start: 20210408
  9. IBRANCE [Suspect]
     Active Substance: PALBOCICLIB
  10. IBRANCE [Suspect]
     Active Substance: PALBOCICLIB
     Route: 048

REACTIONS (15)
  - Dizziness [Unknown]
  - Red blood cell count decreased [Unknown]
  - Constipation [Recovered/Resolved]
  - Malaise [Unknown]
  - Dyspnoea [Unknown]
  - Temperature intolerance [Unknown]
  - Oral disorder [Unknown]
  - Biopsy salivary gland abnormal [Unknown]
  - Dyspnoea exertional [Unknown]
  - Fatigue [Recovering/Resolving]
  - White blood cell count decreased [Recovering/Resolving]
  - Asthenia [Unknown]
  - Nausea [Unknown]
  - Full blood count decreased [Unknown]
  - Stomatitis [Unknown]

NARRATIVE: CASE EVENT DATE: 20210101
